FAERS Safety Report 8258738-4 (Version None)
Quarter: 2012Q2

REPORT INFORMATION
  Report Type: 
  Country: None (occurrence: None)
  Receive Date: 20120404
  Receipt Date: 20120404
  Transmission Date: 20120825
  Serious: Yes (Hospitalization, Other)
  Sender: FDA-Public Use
  Company Number: None

PATIENT
  Age: 42 Year
  Sex: Female
  Weight: 104.32 kg

DRUGS (1)
  1. BACTRIM DS [Suspect]
     Indication: DERMATITIS INFECTED
     Dates: start: 20111130, end: 20111130

REACTIONS (16)
  - MUSCULOSKELETAL STIFFNESS [None]
  - DIAPHRAGMATIC PARALYSIS [None]
  - DYSPNOEA [None]
  - ARTHRALGIA [None]
  - BLOOD PRESSURE INCREASED [None]
  - MASS [None]
  - RASH ERYTHEMATOUS [None]
  - CHILLS [None]
  - BRONCHITIS [None]
  - ASTHENIA [None]
  - NASOPHARYNGITIS [None]
  - PAIN IN EXTREMITY [None]
  - HEADACHE [None]
  - PAIN [None]
  - MUSCULAR WEAKNESS [None]
  - NAUSEA [None]
